FAERS Safety Report 7083269-7 (Version None)
Quarter: 2010Q4

REPORT INFORMATION
  Report Type: 
  Country: None (occurrence: None)
  Receive Date: 20101104
  Receipt Date: 20101029
  Transmission Date: 20110411
  Serious: Yes (Death, Hospitalization)
  Sender: FDA-Public Use
  Company Number: US-CELGENEUS-163-20785-10110092

PATIENT
  Age: 80 Year
  Sex: Male
  Weight: 95.1 kg

DRUGS (6)
  1. THALOMID [Suspect]
     Indication: MULTIPLE MYELOMA
     Route: 048
     Dates: start: 20080719
  2. THALOMID [Suspect]
     Route: 048
     Dates: start: 20081101
  3. THALOMID [Suspect]
     Route: 048
     Dates: start: 20100814, end: 20100825
  4. MELPHALAN HYDROCHLORIDE [Suspect]
     Indication: MULTIPLE MYELOMA
     Route: 048
     Dates: start: 20080719, end: 20090623
  5. PREDNISONE [Suspect]
     Indication: MULTIPLE MYELOMA
     Route: 048
     Dates: start: 20080719, end: 20090623
  6. ASPIRIN [Concomitant]
     Route: 048
     Dates: start: 20080719

REACTIONS (1)
  - ACUTE MYELOID LEUKAEMIA [None]
